FAERS Safety Report 8585782-X (Version None)
Quarter: 2012Q3

REPORT INFORMATION
  Report Type: 
  Country: None (occurrence: None)
  Receive Date: 20120810
  Receipt Date: 20120803
  Transmission Date: 20120928
  Serious: Yes (Hospitalization)
  Sender: FDA-Public Use
  Company Number: JP-B.I. PHARMACEUTICALS,INC./RIDGEFIELD-2012-EU-03768GD

PATIENT
  Age: 8 Decade
  Sex: Male

DRUGS (3)
  1. MELOXICAM [Suspect]
     Indication: BACK PAIN
     Route: 048
     Dates: start: 20100201
  2. ASPIRIN [Suspect]
     Dosage: LOW-DOSE
     Route: 048
  3. MELOXICAM [Suspect]
     Indication: PAIN IN EXTREMITY
     Route: 048
     Dates: start: 20120201

REACTIONS (3)
  - GASTROINTESTINAL HAEMORRHAGE [None]
  - MELAENA [None]
  - SMALL INTESTINE ULCER [None]
